FAERS Safety Report 9514132 (Version 8)
Quarter: 2014Q2

REPORT INFORMATION
  Report Type: Report from Study
  Country: US (occurrence: US)
  Receive Date: 20130910
  Receipt Date: 20140410
  Transmission Date: 20141212
  Serious: Yes (Hospitalization, Other)
  Sender: FDA-Public Use
  Company Number: US-ROCHE-1255928

PATIENT
  Age: 65 Year
  Sex: Female

DRUGS (14)
  1. PEGASYS [Suspect]
     Indication: CHRONIC HEPATITIS C
     Route: 065
     Dates: start: 2001, end: 2002
  2. PEGASYS [Suspect]
     Route: 058
     Dates: start: 20130728, end: 20140112
  3. PEGASYS [Suspect]
     Route: 065
     Dates: start: 1994, end: 1995
  4. RIBAVIRIN [Suspect]
     Indication: CHRONIC HEPATITIS C
     Route: 065
     Dates: start: 1994, end: 1995
  5. RIBAVIRIN [Suspect]
     Route: 065
     Dates: start: 2001, end: 2002
  6. RIBAVIRIN [Suspect]
     Route: 048
     Dates: start: 20130728
  7. INTERFERON ALFA-2A [Suspect]
     Indication: CHRONIC HEPATITIS C
     Route: 065
     Dates: start: 1994, end: 1995
  8. INTERFERON ALFA-2A [Suspect]
     Route: 065
     Dates: start: 2001, end: 2002
  9. TELAPREVIR [Suspect]
     Indication: CHRONIC HEPATITIS C
     Route: 065
     Dates: start: 20130728, end: 201310
  10. RIBAPAK [Suspect]
     Indication: CHRONIC HEPATITIS C
     Dosage: 800 MG PER DAY
     Route: 048
     Dates: start: 20130728
  11. CYMBALTA [Concomitant]
  12. ADDERALL XR [Concomitant]
  13. LANTUS [Concomitant]
     Dosage: 60 UNITS EACH MORNING
     Route: 065
  14. LISINOPRIL [Concomitant]

REACTIONS (28)
  - Dehydration [Unknown]
  - Vomiting [Unknown]
  - Nausea [Not Recovered/Not Resolved]
  - Colitis [Unknown]
  - Influenza [Unknown]
  - Viral infection [Unknown]
  - Hepatic neoplasm [Unknown]
  - Erythema [Unknown]
  - Headache [Unknown]
  - Abdominal discomfort [Unknown]
  - Rash pruritic [Unknown]
  - Decreased appetite [Recovering/Resolving]
  - Dry mouth [Unknown]
  - Blood urine present [Unknown]
  - Thyroid function test abnormal [Unknown]
  - Back pain [Not Recovered/Not Resolved]
  - Stomatitis [Recovering/Resolving]
  - Red blood cell count decreased [Unknown]
  - Blood glucose fluctuation [Unknown]
  - Tinea infection [Unknown]
  - Rash [Unknown]
  - Rash pruritic [Unknown]
  - Weight decreased [Unknown]
  - Dyspnoea [Unknown]
  - Blood electrolytes decreased [Unknown]
  - Muscular weakness [Unknown]
  - Urinary tract infection [Unknown]
  - Pyrexia [Unknown]
